FAERS Safety Report 5244371-5 (Version None)
Quarter: 2007Q1

REPORT INFORMATION
  Report Type: 
  Country: None (occurrence: None)
  Receive Date: 20070222
  Receipt Date: 20070216
  Transmission Date: 20070707
  Serious: Yes (Other)
  Sender: FDA-Public Use
  Company Number: CA-PFIZER INC-2007013187

PATIENT
  Sex: Female

DRUGS (2)
  1. FRAGMIN [Suspect]
     Indication: THERAPEUTIC PROCEDURE
     Dosage: TEXT:200 UNITS/KG; 200 UNITS/KG-FREQ:FREQUENCY: QD
     Route: 058
  2. WARFARIN SODIUM [Concomitant]
     Route: 048

REACTIONS (4)
  - COAGULOPATHY [None]
  - DEEP VEIN THROMBOSIS [None]
  - DYSPNOEA [None]
  - PULMONARY EMBOLISM [None]
